FAERS Safety Report 7423711-2 (Version None)
Quarter: 2011Q2

REPORT INFORMATION
  Report Type: 
  Country: None (occurrence: None)
  Receive Date: 20110411
  Receipt Date: 20110325
  Transmission Date: 20111010
  Serious: Yes (Other)
  Sender: FDA-Public Use
  Company Number: GER/GER/11/0017945

PATIENT
  Age: 68 Year
  Sex: Female

DRUGS (1)
  1. SIMVABETA 20 MG FILMTABLETTEN (SIMVASTATIN) [Suspect]
     Indication: HYPERCHOLESTEROLAEMIA
     Dosage: 20 MG, 1 IN 1 D, ORAL
     Route: 048
     Dates: start: 20110201, end: 20110325

REACTIONS (2)
  - HAEMATOCHEZIA [None]
  - ANAL INFLAMMATION [None]
